FAERS Safety Report 5672607-5 (Version None)
Quarter: 2008Q1

REPORT INFORMATION
  Report Type: 
  Country: None (occurrence: None)
  Receive Date: 20080319
  Receipt Date: 20070112
  Transmission Date: 20080703
  Serious: Yes (Hospitalization)
  Sender: FDA-Public Use
  Company Number: US-JNJFOC-20070104343

PATIENT
  Age: 34 Year
  Sex: Female

DRUGS (3)
  1. TRAMADOL HCL [Suspect]
     Indication: INTENTIONAL DRUG MISUSE
     Route: 048
  2. BENZO [Suspect]
     Indication: INTENTIONAL DRUG MISUSE
     Route: 065
  3. PREDNISONE [Suspect]
     Indication: INTENTIONAL DRUG MISUSE
     Route: 065

REACTIONS (3)
  - DISTURBANCE IN ATTENTION [None]
  - INTENTIONAL DRUG MISUSE [None]
  - SOMNOLENCE [None]
